FAERS Safety Report 5168304-5 (Version None)
Quarter: 2006Q4

REPORT INFORMATION
  Report Type: 
  Country: None (occurrence: None)
  Receive Date: 20061201
  Receipt Date: 20061117
  Transmission Date: 20070319
  Serious: Yes (Death)
  Sender: FDA-Public Use
  Company Number: TNZFR200600119

PATIENT
  Age: 85 Year
  Sex: Male

DRUGS (1)
  1. INNOHEP [Suspect]
     Indication: THROMBOSIS PROPHYLAXIS
     Dosage: 4500 IU (4500 IU,ONCE DAILY),SUBCUTANEOUS
     Route: 058
     Dates: start: 20061001, end: 20061001

REACTIONS (3)
  - CARDIAC ARREST [None]
  - PULMONARY EMBOLISM [None]
  - SUDDEN DEATH [None]
